FAERS Safety Report 9561492 (Version 1)
Quarter: 2013Q3

REPORT INFORMATION
  Report Type: Spontaneous
  Country: US (occurrence: US)
  Receive Date: 20130927
  Receipt Date: 20130927
  Transmission Date: 20140515
  Serious: No
  Sender: FDA-Public Use
  Company Number: US-BIOGENIDEC-2013BI060605

PATIENT
  Age: 47 Year
  Sex: Female

DRUGS (8)
  1. TECFIDERA [Suspect]
     Indication: MULTIPLE SCLEROSIS
     Route: 048
     Dates: start: 20130609
  2. TECFIDERA [Suspect]
     Indication: MULTIPLE SCLEROSIS
     Route: 048
     Dates: start: 20130616
  3. LYRICA [Concomitant]
  4. AMBIEN [Concomitant]
  5. CR (NOS) [Concomitant]
  6. PROTONIX [Concomitant]
  7. BACLOFEN [Concomitant]
  8. VALTREX [Concomitant]

REACTIONS (1)
  - Diarrhoea [Not Recovered/Not Resolved]
